FAERS Safety Report 8261698-3 (Version None)
Quarter: 2012Q1

REPORT INFORMATION
  Report Type: 
  Country: None (occurrence: None)
  Receive Date: 20120321
  Receipt Date: 20111114
  Transmission Date: 20120608
  Serious: Yes (Other)
  Sender: FDA-Public Use
  Company Number: 2011SP053491

PATIENT
  Age: 67 Year
  Sex: Female

DRUGS (1)
  1. PEG-INTRON [Suspect]
     Indication: HEPATITIS C
     Dates: start: 20110701

REACTIONS (3)
  - ASTHENIA [None]
  - ANAEMIA [None]
  - GAIT DISTURBANCE [None]
